FAERS Safety Report 17359779 (Version 2)
Quarter: 2020Q2

REPORT INFORMATION
  Report Type: Spontaneous
  Country: DK (occurrence: DK)
  Receive Date: 20200203
  Receipt Date: 20200611
  Transmission Date: 20200713
  Serious: Yes (Other)
  Sender: FDA-Public Use
  Company Number: DK-TEVA-2020-DK-1177411

PATIENT
  Age: 12 Year
  Sex: Male
  Weight: 37.4 kg

DRUGS (3)
  1. ATOMOXETIN ^MYLAN^ [Suspect]
     Active Substance: ATOMOXETINE
     Indication: ATTENTION DEFICIT HYPERACTIVITY DISORDER
     Dosage: DOSE: 50 MG
     Route: 048
     Dates: start: 20190708, end: 20191008
  2. ATOMOXETIN ^ORION^ [Suspect]
     Active Substance: ATOMOXETINE
     Indication: ATTENTION DEFICIT HYPERACTIVITY DISORDER
     Dosage: DOSE: 50 MG
     Route: 048
     Dates: start: 20191103, end: 20191119
  3. ATOMOXETINE ^TEVA^ [Suspect]
     Active Substance: ATOMOXETINE HYDROCHLORIDE
     Indication: ATTENTION DEFICIT HYPERACTIVITY DISORDER
     Dosage: DOSE: 50 MG
     Route: 048
     Dates: start: 20191008, end: 20191105

REACTIONS (8)
  - Product substitution issue [Unknown]
  - Distractibility [Unknown]
  - Disturbance in attention [Unknown]
  - Drug ineffective [Recovering/Resolving]
  - Psychomotor hyperactivity [Recovering/Resolving]
  - Impulsive behaviour [Recovering/Resolving]
  - Intentional self-injury [Recovering/Resolving]
  - Suicide threat [Recovering/Resolving]

NARRATIVE: CASE EVENT DATE: 2019
